FAERS Safety Report 14000619 (Version 1)
Quarter: 2017Q3

REPORT INFORMATION
  Report Type: Spontaneous
  Country: US (occurrence: None)
  Receive Date: 20170922
  Receipt Date: 20170922
  Transmission Date: 20171128
  Serious: No
  Sender: FDA-Public Use
  Company Number: None

PATIENT
  Sex: Female

DRUGS (1)
  1. ZARXIO [Suspect]
     Active Substance: FILGRASTIM-SNDZ
     Indication: AGRANULOCYTOSIS
     Dosage: 300MCG (1 SYRINGE) DAILY FOR 4 DAYS EVERY WEEK FOR 21 DAYS SUBCUTANEOUSLY
     Route: 058
     Dates: start: 20170608

REACTIONS (3)
  - Bone pain [None]
  - Gait disturbance [None]
  - Tremor [None]
